FAERS Safety Report 5742235-1 (Version None)
Quarter: 2008Q2

REPORT INFORMATION
  Report Type: 
  Country: None (occurrence: None)
  Receive Date: 20080515
  Receipt Date: 20080225
  Transmission Date: 20081010
  Serious: No
  Sender: FDA-Public Use
  Company Number: PHEH2008US02189

PATIENT
  Sex: Male
  Weight: 77.1 kg

DRUGS (1)
  1. TEKTURNA HCT [Suspect]
     Indication: HYPERTENSION
     Dosage: 150/12.5MG, QD
     Dates: start: 20080218, end: 20080225

REACTIONS (1)
  - RASH [None]
